FAERS Safety Report 5216565-6 (Version None)
Quarter: 2007Q1

REPORT INFORMATION
  Report Type: 
  Country: None (occurrence: None)
  Receive Date: 20061130
  Receipt Date: 20060814
  Transmission Date: 20070707
  Serious: Yes (Hospitalization, Other)
  Sender: FDA-Public Use
  Company Number: US200608003128

PATIENT
  Age: 35 Year
  Sex: Female
  Weight: 96.6 kg

DRUGS (8)
  1. ZYPREXA [Suspect]
     Dosage: 40 MG, ORAL
     Route: 048
     Dates: start: 19960101, end: 19970101
  2. QUETIAPINE FUMARATE [Concomitant]
  3. ZIPRASIDONE HCL [Concomitant]
  4. HALOPERIDOL [Concomitant]
  5. THIOTHIXENE [Concomitant]
  6. PROLIXIN [Concomitant]
  7. BUPROPION HCL [Concomitant]
  8. LUPRON [Concomitant]

REACTIONS (11)
  - BLOOD CHOLESTEROL ABNORMAL [None]
  - BLOOD TRIGLYCERIDES INCREASED [None]
  - DIABETES MELLITUS [None]
  - DIABETIC COMA [None]
  - DIABETIC KETOACIDOSIS [None]
  - HYPERGLYCAEMIA [None]
  - HYPERGLYCAEMIC HYPEROSMOLAR NONKETOTIC SYNDROME [None]
  - HYPOGLYCAEMIA [None]
  - METABOLIC DISORDER [None]
  - PANCREATITIS [None]
  - PRESCRIBED OVERDOSE [None]
